FAERS Safety Report 18238969 (Version 2)
Quarter: 2020Q3

REPORT INFORMATION
  Report Type: Spontaneous
  Country: US (occurrence: US)
  Receive Date: 20200907
  Receipt Date: 20200909
  Transmission Date: 20201103
  Serious: No
  Sender: FDA-Public Use
  Company Number: US-JNJFOC-20200907998

PATIENT
  Age: 65 Year
  Sex: Female
  Weight: 76.27 kg

DRUGS (1)
  1. IMODIUM MULTI?SYMPTOM RELIEF [Suspect]
     Active Substance: DIMETHICONE\LOPERAMIDE HYDROCHLORIDE
     Indication: DIARRHOEA
     Dosage: 2 TWICE DAILY
     Route: 048
     Dates: start: 20200829, end: 20200829

REACTIONS (2)
  - Drug ineffective [Unknown]
  - Product lot number issue [Unknown]
